FAERS Safety Report 5334345-8 (Version None)
Quarter: 2007Q2

REPORT INFORMATION
  Report Type: 
  Country: None (occurrence: None)
  Receive Date: 20070525
  Receipt Date: 20061016
  Transmission Date: 20071010
  Serious: Yes (Death)
  Sender: FDA-Public Use
  Company Number: US-BRISTOL-MYERS SQUIBB COMPANY-13548441

PATIENT
  Age: 39 Year
  Sex: Female

DRUGS (3)
  1. CYCLOPHOSPHAMIDE [Suspect]
  2. DOCETAXEL [Suspect]
  3. ADRIAMYCIN PFS [Suspect]

REACTIONS (1)
  - SEPSIS [None]
